FAERS Safety Report 18951922 (Version 1)
Quarter: 2021Q1

REPORT INFORMATION
  Report Type: Spontaneous
  Country: AU (occurrence: AU)
  Receive Date: 20210301
  Receipt Date: 20210301
  Transmission Date: 20210420
  Serious: Yes (Other)
  Sender: FDA-Public Use
  Company Number: AU-EPICPHARMA-AU-2021EPCLIT00191

PATIENT
  Age: 18 Year

DRUGS (4)
  1. CYPROTERONE [Suspect]
     Active Substance: CYPROTERONE
     Indication: TRANSGENDER HORMONAL THERAPY
     Route: 065
  2. ESTRADIOL. [Suspect]
     Active Substance: ESTRADIOL
     Indication: TRANSGENDER HORMONAL THERAPY
     Route: 061
  3. PROGESTERONE. [Suspect]
     Active Substance: PROGESTERONE
     Indication: TRANSGENDER HORMONAL THERAPY
     Route: 065
  4. ESTRADIOL. [Suspect]
     Active Substance: ESTRADIOL
     Dosage: SUBDERMAL
     Route: 059

REACTIONS (4)
  - Galactorrhoea [Unknown]
  - Hyperprolactinaemia [Recovered/Resolved]
  - Product use in unapproved indication [Unknown]
  - Prolactin-producing pituitary tumour [Recovered/Resolved]
